FAERS Safety Report 6906651-4 (Version None)
Quarter: 2010Q3

REPORT INFORMATION
  Report Type: 
  Country: None (occurrence: None)
  Receive Date: 20100804
  Receipt Date: 20100723
  Transmission Date: 20110219
  Serious: Yes (Disabling, Other)
  Sender: FDA-Public Use
  Company Number: US-PFIZER INC-2006059520

PATIENT
  Sex: Female
  Weight: 92.99 kg

DRUGS (14)
  1. LYRICA [Suspect]
     Indication: FIBROMYALGIA
     Dosage: UNK
     Dates: start: 20100101
  2. GABAPENTIN [Suspect]
     Dosage: UNK
  3. VICOPROFEN [Suspect]
     Indication: PAIN
     Route: 065
     Dates: end: 20060101
  4. PROZAC [Suspect]
     Indication: DEPRESSION
     Route: 065
     Dates: start: 19990101, end: 20060301
  5. ZOCOR [Concomitant]
     Route: 065
  6. LEVOTHYROXINE [Concomitant]
     Route: 065
  7. LISINOPRIL [Concomitant]
     Route: 065
  8. LORATADINE [Concomitant]
     Route: 065
  9. GLIPIZIDE [Concomitant]
     Route: 065
  10. PROPRANOLOL [Concomitant]
     Route: 065
  11. ASPIRIN [Concomitant]
     Route: 065
  12. LIDOCAINE [Concomitant]
     Route: 065
  13. LORCET-HD [Concomitant]
     Indication: PAIN
  14. SOMA [Concomitant]
     Indication: PAIN

REACTIONS (9)
  - CHRONIC FATIGUE SYNDROME [None]
  - COMPLEX REGIONAL PAIN SYNDROME [None]
  - DEPRESSION [None]
  - DRUG INEFFECTIVE [None]
  - FIBROMYALGIA [None]
  - HALLUCINATION [None]
  - LOCALISED INFECTION [None]
  - ORAL PRURITUS [None]
  - SOMNOLENCE [None]
